FAERS Safety Report 5776864-6 (Version None)
Quarter: 2008Q2

REPORT INFORMATION
  Report Type: 
  Country: None (occurrence: None)
  Receive Date: 20080618
  Receipt Date: 20080421
  Transmission Date: 20081010
  Serious: No
  Sender: FDA-Public Use
  Company Number: US-ASTRAZENECA-2008UW08062

PATIENT
  Age: 57 Year
  Sex: Female
  Weight: 80.3 kg

DRUGS (3)
  1. SYMBICORT [Suspect]
     Indication: CHRONIC OBSTRUCTIVE PULMONARY DISEASE
     Route: 055
     Dates: start: 20080131
  2. THEOPHYLLINE [Concomitant]
  3. PROAIR HFA [Concomitant]

REACTIONS (1)
  - WEIGHT INCREASED [None]
